FAERS Safety Report 13271663 (Version 1)
Quarter: 2017Q1

REPORT INFORMATION
  Report Type: Spontaneous
  Country: CA (occurrence: CA)
  Receive Date: 20170227
  Receipt Date: 20170227
  Transmission Date: 20170428
  Serious: Yes (Hospitalization)
  Sender: FDA-Public Use
  Company Number: CA-TEVA-744001ACC

PATIENT
  Age: 56 Year
  Sex: Female
  Weight: 97 kg

DRUGS (8)
  1. RAMIPRIL. [Suspect]
     Active Substance: RAMIPRIL
     Indication: MYOCARDIAL INFARCTION
     Dosage: 10 MILLIGRAM DAILY;
     Route: 048
  2. FISH OIL [Concomitant]
     Active Substance: FISH OIL
  3. METOPROLOL. [Concomitant]
     Active Substance: METOPROLOL
  4. RANITIDINE - 150 [Concomitant]
  5. ROSUVASTATIN. [Concomitant]
     Active Substance: ROSUVASTATIN
  6. MULTIVITAMINE(S) [Concomitant]
  7. ASA [Concomitant]
     Active Substance: ASPIRIN
  8. EZETIMIBE. [Concomitant]
     Active Substance: EZETIMIBE

REACTIONS (2)
  - Paraesthesia [Recovered/Resolved]
  - Pharyngeal oedema [Recovered/Resolved]
